FAERS Safety Report 6735460-4 (Version None)
Quarter: 2010Q2

REPORT INFORMATION
  Report Type: 
  Country: None (occurrence: None)
  Receive Date: 20100521
  Receipt Date: 20100519
  Transmission Date: 20101027
  Serious: Yes (Death)
  Sender: FDA-Public Use
  Company Number: PHHY2010VE32473

PATIENT
  Sex: Female

DRUGS (3)
  1. SANDOSTATIN [Suspect]
     Dosage: UNK
     Route: 058
     Dates: start: 20100414
  2. BUSCAPINA [Concomitant]
     Indication: ABDOMINAL PAIN UPPER
     Dosage: UNK
     Dates: start: 20100301
  3. IRTOPAN [Concomitant]
     Indication: VOMITING
     Dosage: UNK
     Dates: start: 20100301

REACTIONS (1)
  - PULMONARY EMBOLISM [None]
